FAERS Safety Report 7883081-2 (Version None)
Quarter: 2011Q4

REPORT INFORMATION
  Report Type: 
  Country: None (occurrence: None)
  Receive Date: 20111102
  Receipt Date: 20111024
  Transmission Date: 20120403
  Serious: No
  Sender: FDA-Public Use
  Company Number: US-BIOGENIDEC-2011BI040646

PATIENT
  Sex: Female

DRUGS (3)
  1. TYSABRI [Suspect]
     Indication: MULTIPLE SCLEROSIS
     Route: 042
     Dates: start: 20101122
  2. TYSABRI [Suspect]
     Route: 042
     Dates: start: 20080404, end: 20080819
  3. TYSABRI [Suspect]
     Route: 042
     Dates: start: 20090127, end: 20100125

REACTIONS (4)
  - MUSCLE SPASMS [None]
  - FATIGUE [None]
  - ANXIETY [None]
  - MOUTH ULCERATION [None]
